FAERS Safety Report 19449461 (Version 1)
Quarter: 2021Q2

REPORT INFORMATION
  Report Type: Spontaneous
  Country: FR (occurrence: FR)
  Receive Date: 20210622
  Receipt Date: 20210622
  Transmission Date: 20210717
  Serious: Yes (Death, Life-Threatening, Other)
  Sender: FDA-Public Use
  Company Number: FR-AMGEN-FRASP2021092797

PATIENT

DRUGS (5)
  1. DARATUMUMAB [Suspect]
     Active Substance: DARATUMUMAB
     Indication: PLASMA CELL MYELOMA
     Dosage: UNK
     Route: 065
  2. LENALIDOMIDE [Suspect]
     Active Substance: LENALIDOMIDE
     Indication: PLASMA CELL MYELOMA
     Dosage: UNK
     Route: 065
  3. CARFILZOMIB [Suspect]
     Active Substance: CARFILZOMIB
     Indication: PLASMA CELL MYELOMA
     Dosage: 20 MILLIGRAM/SQ. METER/ ON DAYS I AND 2 OF CYCLE 1
     Route: 065
  4. CARFILZOMIB [Suspect]
     Active Substance: CARFILZOMIB
     Dosage: 56 MILLIGRAM/SQ. METER/ THEREAFTER AS TOLERATED
     Route: 065
  5. DEXAMETHASONE. [Suspect]
     Active Substance: DEXAMETHASONE
     Indication: PLASMA CELL MYELOMA
     Dosage: UNK
     Route: 065

REACTIONS (34)
  - Thrombocytopenia [Unknown]
  - Anaemia [Unknown]
  - Cardiac amyloidosis [Unknown]
  - Immune-mediated hypothyroidism [Unknown]
  - Immune-mediated nephritis [Unknown]
  - Insomnia [Unknown]
  - Pneumonia [Unknown]
  - Blood creatinine increased [Unknown]
  - Agitation [Unknown]
  - Asthenia [Unknown]
  - Headache [Unknown]
  - Immune-mediated hypophysitis [Unknown]
  - Vomiting [Unknown]
  - Influenza [Unknown]
  - Neutropenia [Unknown]
  - Pyrexia [Unknown]
  - Bronchitis [Unknown]
  - Nausea [Unknown]
  - Tinnitus [Unknown]
  - Alanine aminotransferase increased [Unknown]
  - Prostatitis [Unknown]
  - Multiple organ dysfunction syndrome [Fatal]
  - Hepatocellular injury [Unknown]
  - Plasma cell myeloma [Unknown]
  - Hypopituitarism [Unknown]
  - Diarrhoea [Unknown]
  - Muscle spasms [Unknown]
  - Gamma-glutamyltransferase increased [Unknown]
  - Acute kidney injury [Unknown]
  - Hypokalaemia [Unknown]
  - Therapeutic product effect incomplete [Unknown]
  - Rash [Unknown]
  - Rhinitis [Unknown]
  - Bacteraemia [Unknown]
